FAERS Safety Report 7937925-6 (Version None)
Quarter: 2011Q4

REPORT INFORMATION
  Report Type: 
  Country: None (occurrence: None)
  Receive Date: 20111123
  Receipt Date: 20111114
  Transmission Date: 20120403
  Serious: Yes (Hospitalization)
  Sender: FDA-Public Use
  Company Number: US-BAYER-2011-031855

PATIENT
  Age: 38 Year
  Sex: Female
  Weight: 89.3 kg

DRUGS (1)
  1. YAZ [Suspect]
     Dosage: UNK
     Dates: start: 20071201, end: 20080301

REACTIONS (5)
  - CHEST PAIN [None]
  - BACK PAIN [None]
  - HYPOAESTHESIA [None]
  - PULMONARY EMBOLISM [None]
  - DYSPNOEA [None]
